FAERS Safety Report 16024816 (Version 1)
Quarter: 2019Q1

REPORT INFORMATION
  Report Type: Spontaneous
  Country: FR (occurrence: FR)
  Receive Date: 20190301
  Receipt Date: 20190301
  Transmission Date: 20190418
  Serious: Yes (Death)
  Sender: FDA-Public Use
  Company Number: FR-PFIZER INC-2019085978

PATIENT
  Age: 83 Year
  Sex: Female
  Weight: 40 kg

DRUGS (10)
  1. CALCIUM FOLINATE [Suspect]
     Active Substance: LEUCOVORIN CALCIUM
     Indication: ANAEMIA MACROCYTIC
     Dosage: 5 MG, WEEKLY
     Route: 048
     Dates: end: 20181029
  2. FRAGMINE [Suspect]
     Active Substance: DALTEPARIN SODIUM
     Indication: EMBOLISM VENOUS
     Dosage: 1 DF, 1X/DAY
     Route: 058
     Dates: end: 20181029
  3. METOJECT [Suspect]
     Active Substance: METHOTREXATE SODIUM
     Indication: RHEUMATOID ARTHRITIS
     Dosage: 10 MG, WEEKLY
     Route: 058
     Dates: end: 20181011
  4. SERESTA [Suspect]
     Active Substance: OXAZEPAM
     Indication: ANXIETY DISORDER
     Dosage: 60 MG, 1X/DAY (10MG IN THE AFTERNOON + 50MG IN THE EVENING)
     Route: 048
     Dates: end: 20181029
  5. ACLASTA [Suspect]
     Active Substance: ZOLEDRONIC ACID
     Indication: OSTEOPOROTIC FRACTURE
     Dosage: UNK
     Route: 042
     Dates: end: 20181029
  6. IMOVANE [Suspect]
     Active Substance: ZOPICLONE
     Indication: INSOMNIA
     Dosage: 1 DF, 1X/DAY
     Route: 048
     Dates: end: 20181029
  7. NEBIVOLOL. [Suspect]
     Active Substance: NEBIVOLOL
     Indication: HYPERTENSION
     Dosage: 1.25 MG, 1X/DAY
     Route: 048
     Dates: end: 20181029
  8. ULTRA LEVURE [Suspect]
     Active Substance: SACCHAROMYCES CEREVISIAE
     Indication: DIARRHOEA
     Dosage: 1 DF, 1X/DAY
     Route: 048
     Dates: end: 20181029
  9. LEVOTHYROX [Suspect]
     Active Substance: LEVOTHYROXINE
     Indication: HYPOTHYROIDISM
     Dosage: UNK
     Route: 048
     Dates: end: 20181029
  10. PARACETAMOL [Suspect]
     Active Substance: ACETAMINOPHEN
     Indication: ARTHRALGIA
     Dosage: 3 G, 1X/DAY
     Route: 048
     Dates: end: 20181029

REACTIONS (4)
  - Lung disorder [Fatal]
  - Femur fracture [Fatal]
  - Fall [Fatal]
  - Sudden death [Fatal]

NARRATIVE: CASE EVENT DATE: 20180920
